FAERS Safety Report 15510116 (Version 1)
Quarter: 2018Q4

REPORT INFORMATION
  Report Type: Spontaneous
  Country: US (occurrence: US)
  Receive Date: 20181017
  Receipt Date: 20181017
  Transmission Date: 20190205
  Serious: No
  Sender: FDA-Public Use
  Company Number: None

PATIENT
  Age: 46 Year
  Sex: Female
  Weight: 63.45 kg

DRUGS (1)
  1. BUPRENORPHINE AND NALOXONE SUBLINGUAL FILM 8 MG/2MG [Suspect]
     Active Substance: BUPRENORPHINE\NALOXONE
     Indication: PAIN MANAGEMENT
     Route: 060
     Dates: start: 20180412

REACTIONS (12)
  - Somnolence [None]
  - Vision blurred [None]
  - Oral herpes [None]
  - Dissociation [None]
  - Depression [None]
  - Complex regional pain syndrome [None]
  - Application site vesicles [None]
  - Loss of personal independence in daily activities [None]
  - Nerve injury [None]
  - Tongue disorder [None]
  - Libido disorder [None]
  - Asthenopia [None]

NARRATIVE: CASE EVENT DATE: 20181017
